FAERS Safety Report 25223278 (Version 2)
Quarter: 2025Q2

REPORT INFORMATION
  Report Type: Spontaneous
  Country: US (occurrence: US)
  Receive Date: 20250422
  Receipt Date: 20250501
  Transmission Date: 20250717
  Serious: Yes (Hospitalization, Other)
  Sender: TEVA
  Company Number: US-TEVA-VS-3323372

PATIENT
  Age: 10 Year
  Sex: Female

DRUGS (1)
  1. IMATINIB [Suspect]
     Active Substance: IMATINIB
     Indication: Chronic myeloid leukaemia
     Route: 065

REACTIONS (4)
  - Osteonecrosis [Recovered/Resolved]
  - Spondylolysis [Recovering/Resolving]
  - Atypical femur fracture [Recovering/Resolving]
  - Foot fracture [Recovering/Resolving]
